FAERS Safety Report 8508046-9 (Version None)
Quarter: 2012Q3

REPORT INFORMATION
  Report Type: 
  Country: None (occurrence: None)
  Receive Date: 20120713
  Receipt Date: 20120710
  Transmission Date: 20120928
  Serious: Yes (Hospitalization, Other)
  Sender: FDA-Public Use
  Company Number: PHEH2012US013579

PATIENT
  Sex: Male
  Weight: 75.283 kg

DRUGS (5)
  1. HYDREA [Concomitant]
     Dosage: 500 MG, UNK
  2. EXJADE [Suspect]
     Indication: IRON OVERLOAD
     Dosage: 3 DF, DAILY (1500 MG)
     Route: 048
  3. PRILOSEC [Concomitant]
     Dosage: 10 MG, UNK
  4. MULTI-VITAMINS [Concomitant]
  5. ZOCOR [Concomitant]
     Dosage: 5 MG, UNK

REACTIONS (4)
  - PYREXIA [None]
  - WEIGHT INCREASED [None]
  - ABDOMINAL DISTENSION [None]
  - STAPHYLOCOCCAL INFECTION [None]
